FAERS Safety Report 10063166 (Version 2)
Quarter: 2014Q2

REPORT INFORMATION
  Report Type: Spontaneous
  Country: US (occurrence: US)
  Receive Date: 20140407
  Receipt Date: 20140415
  Transmission Date: 20141212
  Serious: Yes (Hospitalization, Other)
  Sender: FDA-Public Use
  Company Number: US-BAXTER-2014BAX016422

PATIENT
  Sex: Male

DRUGS (2)
  1. DIANEAL LOW CALCIUM (ULTRABAG) [Suspect]
     Indication: PERITONEAL DIALYSIS
     Route: 033
     Dates: end: 20140403
  2. DIANEAL LOW CALCIUM (ULTRABAG) [Suspect]
     Indication: PERITONEAL DIALYSIS
     Route: 033
     Dates: end: 20140403

REACTIONS (6)
  - Urinary bladder haemorrhage [Recovered/Resolved]
  - Radiation associated haemorrhage [Recovered/Resolved]
  - Aspiration [Unknown]
  - Pneumonia [Recovering/Resolving]
  - Cardiac arrest [Recovered/Resolved]
  - Fluid retention [Recovering/Resolving]
